FAERS Safety Report 7353908-1 (Version None)
Quarter: 2011Q1

REPORT INFORMATION
  Report Type: 
  Country: None (occurrence: None)
  Receive Date: 20110315
  Receipt Date: 20110228
  Transmission Date: 20110831
  Serious: Yes (Other)
  Sender: FDA-Public Use
  Company Number: PHHY2011US16888

PATIENT
  Sex: Male

DRUGS (10)
  1. ENALAPRIL MALEATE [Concomitant]
  2. SABRIL [Concomitant]
  3. BACTRIM [Concomitant]
  4. AFINITOR [Suspect]
     Indication: ASTROCYTOMA
     Dosage: 5 MG, DAILY
     Route: 048
     Dates: start: 20110107
  5. VEMPAT [Concomitant]
  6. FOCALIN XR [Concomitant]
  7. DIASTAT [Concomitant]
  8. CARAFATE [Concomitant]
  9. AFINITOR [Suspect]
     Indication: TUBEROUS SCLEROSIS
  10. CLONIDINE [Concomitant]

REACTIONS (4)
  - PYREXIA [None]
  - COUGH [None]
  - NASAL CONGESTION [None]
  - CONVULSION [None]
